FAERS Safety Report 6406697-9 (Version None)
Quarter: 2009Q4

REPORT INFORMATION
  Report Type: 
  Country: None (occurrence: None)
  Receive Date: 20091020
  Receipt Date: 20091008
  Transmission Date: 20100525
  Serious: Yes (Hospitalization)
  Sender: FDA-Public Use
  Company Number: GB-RANBAXY-2009RR-28600

PATIENT
  Age: 32 Year
  Sex: Female

DRUGS (13)
  1. IBUPROFEN [Suspect]
     Indication: BACK PAIN
     Dosage: 400 MG, UNK
  2. IBUPROFEN [Suspect]
     Indication: ARTHRALGIA
  3. MORPHINE [Suspect]
     Indication: BACK PAIN
     Dosage: 10 MG, UNK
  4. MORPHINE [Suspect]
     Indication: ARTHRALGIA
  5. PARACETAMOL [Suspect]
     Indication: BACK PAIN
     Dosage: 1000 MG, UNK
  6. PARACETAMOL [Suspect]
     Indication: ARTHRALGIA
  7. TIGER BALM [Suspect]
     Indication: BACK PAIN
  8. TIGER BALM [Suspect]
     Indication: ARTHRALGIA
  9. TRAMADOL HCL [Suspect]
     Indication: BACK PAIN
     Dosage: 100 MG, UNK
  10. TRAMADOL HCL [Suspect]
     Indication: ARTHRALGIA
  11. DOTHIEPIN [Concomitant]
     Indication: PAIN
     Dosage: 75 MG, QD
  12. HYDROXYUREA [Concomitant]
     Indication: SICKLE CELL ANAEMIA
  13. PENICILLIN V [Concomitant]
     Indication: INFECTION PROPHYLAXIS

REACTIONS (1)
  - DRUG INEFFECTIVE [None]
